FAERS Safety Report 21063731 (Version 1)
Quarter: 2022Q3

REPORT INFORMATION
  Report Type: Spontaneous
  Country: US (occurrence: None)
  Receive Date: 20220708
  Receipt Date: 20220708
  Transmission Date: 20221027
  Serious: No
  Sender: FDA-Public Use
  Company Number: None

PATIENT
  Age: 69 Year
  Sex: Male

DRUGS (1)
  1. DIMETHYL FUMARATE [Suspect]
     Active Substance: DIMETHYL FUMARATE
     Dosage: 240MG BID ORAL?
     Route: 048
     Dates: start: 201306

REACTIONS (7)
  - Vomiting [None]
  - Pancreatitis acute [None]
  - Hepatic infection [None]
  - Syncope [None]
  - Prostatomegaly [None]
  - Urinary retention [None]
  - Multiple sclerosis [None]

NARRATIVE: CASE EVENT DATE: 20220707
